FAERS Safety Report 17654021 (Version 3)
Quarter: 2020Q2

REPORT INFORMATION
  Report Type: Report from Study
  Country: None (occurrence: NO)
  Receive Date: 20200410
  Receipt Date: 20200420
  Transmission Date: 20200713
  Serious: Yes (Hospitalization, Other)
  Sender: FDA-Public Use
  Company Number: NO-ABBVIE-20K-122-3355439-00

PATIENT
  Age: 77 Year
  Sex: Female

DRUGS (1)
  1. DUODOPA [Suspect]
     Active Substance: CARBIDOPA\LEVODOPA
     Indication: PRODUCT USED FOR UNKNOWN INDICATION
     Route: 050
     Dates: start: 2014

REACTIONS (16)
  - Cardiac arrest [Unknown]
  - Poor peripheral circulation [Unknown]
  - Blood creatinine decreased [Unknown]
  - Malnutrition [Unknown]
  - Ileus [Unknown]
  - Stoma site discharge [Unknown]
  - Abdominal pain [Recovering/Resolving]
  - Abdominal pain upper [Recovering/Resolving]
  - Malaise [Recovering/Resolving]
  - Hypotension [Unknown]
  - Muscle atrophy [Unknown]
  - Post procedural sepsis [Unknown]
  - Parkinson^s disease [Unknown]
  - Post procedural complication [Unknown]
  - Vomiting [Recovering/Resolving]
  - Cachexia [Unknown]

NARRATIVE: CASE EVENT DATE: 2020
